FAERS Safety Report 6656216-7 (Version None)
Quarter: 2010Q1

REPORT INFORMATION
  Report Type: 
  Country: None (occurrence: None)
  Receive Date: 20100317
  Receipt Date: 20091207
  Transmission Date: 20100710
  Serious: No
  Sender: FDA-Public Use
  Company Number: DSA_42151_2009

PATIENT
  Sex: Male

DRUGS (5)
  1. XENAZINE [Suspect]
     Indication: CHOREA
     Dosage: (25 MG BID)
     Dates: start: 20090101
  2. WELLBUTRIN [Concomitant]
  3. METOPROLOL TARTRATE [Concomitant]
  4. LYRICA [Concomitant]
  5. CLONAZEPAM [Concomitant]

REACTIONS (10)
  - ANXIETY [None]
  - BALANCE DISORDER [None]
  - CRYING [None]
  - DRUG ADMINISTRATION ERROR [None]
  - EMOTIONAL DISORDER [None]
  - FATIGUE [None]
  - FEELING GUILTY [None]
  - IRRITABILITY [None]
  - RESTLESSNESS [None]
  - SOMNOLENCE [None]
